FAERS Safety Report 9753236 (Version 2)
Quarter: 2013Q4

REPORT INFORMATION
  Report Type: Spontaneous
  Country: US (occurrence: US)
  Receive Date: 20131213
  Receipt Date: 20131213
  Transmission Date: 20140711
  Serious: No
  Sender: FDA-Public Use
  Company Number: US-GILEAD-2010-0027372

PATIENT
  Sex: Female
  Weight: 81.65 kg

DRUGS (9)
  1. LETAIRIS [Suspect]
     Indication: PULMONARY ARTERIAL HYPERTENSION
     Route: 048
     Dates: start: 20090402, end: 20100225
  2. BACTRIM DS [Concomitant]
  3. FOSAMAX [Concomitant]
  4. PRILOSEC [Concomitant]
  5. REGLAN [Concomitant]
  6. LASIX [Concomitant]
  7. IMURAN [Concomitant]
  8. COMBIVENT [Concomitant]
  9. PREDNISONE-5 [Concomitant]

REACTIONS (1)
  - Liver function test abnormal [Unknown]
